FAERS Safety Report 5045723-9 (Version None)
Quarter: 2006Q3

REPORT INFORMATION
  Report Type: 
  Country: None (occurrence: None)
  Receive Date: 20060710
  Receipt Date: 20060628
  Transmission Date: 20061208
  Serious: Yes (Other)
  Sender: FDA-Public Use
  Company Number: PHBS2006TT09709

PATIENT
  Age: 70 Year
  Sex: Male

DRUGS (2)
  1. TRILEPTAL [Suspect]
     Indication: DIABETIC NEUROPATHY
     Dosage: 300 MG, BID
     Route: 048
  2. INSULIN [Concomitant]
     Route: 065

REACTIONS (6)
  - ABDOMINAL DISCOMFORT [None]
  - ABNORMAL BEHAVIOUR [None]
  - GASTROINTESTINAL DISORDER [None]
  - HALLUCINATION [None]
  - INSOMNIA [None]
  - URINARY TRACT DISORDER [None]
